FAERS Safety Report 22129077 (Version 3)
Quarter: 2023Q2

REPORT INFORMATION
  Report Type: Spontaneous
  Country: US (occurrence: US)
  Receive Date: 20230323
  Receipt Date: 20230425
  Transmission Date: 20230722
  Serious: No
  Sender: FDA-Public Use
  Company Number: US-INCYTE CORPORATION-2023IN002538

PATIENT
  Age: 81 Year
  Sex: Female

DRUGS (11)
  1. JAKAFI [Suspect]
     Active Substance: RUXOLITINIB
     Indication: Essential thrombocythaemia
     Dosage: 5 MG, BID
     Route: 048
  2. JAKAFI [Suspect]
     Active Substance: RUXOLITINIB
     Dosage: 5 MG, BID
     Route: 048
  3. GABAPENTIN [Suspect]
     Active Substance: GABAPENTIN
     Indication: Product used for unknown indication
     Dosage: 300 MG
     Route: 065
  4. AMITRIPTYLINE [Concomitant]
     Active Substance: AMITRIPTYLINE
     Indication: Product used for unknown indication
     Dosage: 10 MG
     Route: 065
  5. CELECOXIB [Concomitant]
     Active Substance: CELECOXIB
     Indication: Product used for unknown indication
     Dosage: 100 MG
     Route: 065
  6. CLOPIDOGREL [Concomitant]
     Active Substance: CLOPIDOGREL BISULFATE
     Indication: Product used for unknown indication
     Dosage: 75 MG
     Route: 065
  7. ESOMEPRAZOLE [Concomitant]
     Active Substance: ESOMEPRAZOLE
     Indication: Product used for unknown indication
     Dosage: 20 MG (DELAYED RELEASE)
     Route: 065
  8. FAMCICLOVIR [Concomitant]
     Active Substance: FAMCICLOVIR
     Indication: Product used for unknown indication
     Dosage: 500 MG
     Route: 065
  9. LEVOTHYROXINE [Concomitant]
     Active Substance: LEVOTHYROXINE
     Indication: Product used for unknown indication
     Dosage: 25 UG
     Route: 065
  10. LISINOPRIL [Concomitant]
     Active Substance: LISINOPRIL
     Indication: Product used for unknown indication
     Dosage: 40 MG
     Route: 065
  11. MONTELUKAST [Concomitant]
     Active Substance: MONTELUKAST SODIUM
     Indication: Product used for unknown indication
     Dosage: 10 MG
     Route: 065

REACTIONS (12)
  - Splenomegaly [Unknown]
  - Abdominal pain upper [Unknown]
  - Fatigue [Unknown]
  - Somnolence [Unknown]
  - Decreased appetite [Unknown]
  - Asthma [Unknown]
  - Diarrhoea [Unknown]
  - Skin abrasion [Unknown]
  - Impaired healing [Unknown]
  - Depressed mood [Unknown]
  - Skin disorder [Unknown]
  - Off label use [Unknown]
